FAERS Safety Report 8396040-0 (Version None)
Quarter: 2012Q2

REPORT INFORMATION
  Report Type: 
  Country: None (occurrence: None)
  Receive Date: 20120530
  Receipt Date: 20120524
  Transmission Date: 20120825
  Serious: No
  Sender: FDA-Public Use
  Company Number: US-PFIZER INC-2012126807

PATIENT
  Sex: Female
  Weight: 68.027 kg

DRUGS (3)
  1. ALLEGRA [Concomitant]
     Indication: HYPERSENSITIVITY
     Dosage: 180 MG, DAILY
  2. PREMARIN [Suspect]
     Indication: DYSPAREUNIA
  3. PREMARIN [Suspect]
     Indication: VULVOVAGINAL DRYNESS
     Dosage: UNK, 2 TIMES A WEEK
     Dates: start: 20120401, end: 20120507

REACTIONS (2)
  - FEELING ABNORMAL [None]
  - VAGINISMUS [None]
